FAERS Safety Report 10875002 (Version 1)
Quarter: 2015Q1

REPORT INFORMATION
  Report Type: Spontaneous
  Country: MX (occurrence: MX)
  Receive Date: 20150227
  Receipt Date: 20150227
  Transmission Date: 20150721
  Serious: Yes (Life-Threatening)
  Sender: FDA-Public Use
  Company Number: MX-MUNDIPHARMA DS AND PHARMACOVIGILANCE-GBR-2015-0025897

PATIENT
  Sex: Female

DRUGS (1)
  1. SOLORO7 [Suspect]
     Active Substance: BUPRENORPHINE
     Indication: BACK PAIN
     Dosage: 5 MG, UNK
     Route: 062

REACTIONS (6)
  - Loss of consciousness [Unknown]
  - Blood pressure increased [Unknown]
  - Fall [Unknown]
  - Dizziness [Unknown]
  - Syncope [Unknown]
  - Spinal column injury [Unknown]
